FAERS Safety Report 10205705 (Version 1)
Quarter: 2014Q2

REPORT INFORMATION
  Report Type: Report from Study
  Country: US (occurrence: US)
  Receive Date: 20140530
  Receipt Date: 20140530
  Transmission Date: 20141212
  Serious: Yes (Hospitalization)
  Sender: FDA-Public Use
  Company Number: US-ROCHE-1408857

PATIENT
  Age: 52 Year
  Sex: Female
  Weight: 105.78 kg

DRUGS (4)
  1. ACTEMRA [Suspect]
     Indication: RHEUMATOID ARTHRITIS
     Dosage: STARTED PRIOR TO 20/MAY/2014
     Route: 058
     Dates: end: 20140520
  2. ACTEMRA [Suspect]
     Indication: RHEUMATOID ARTHRITIS
     Route: 042
     Dates: start: 20140520
  3. OMEPRAZOLE [Concomitant]
     Indication: GASTROOESOPHAGEAL REFLUX DISEASE
  4. GAVISCON (ALGINIC ACID) [Concomitant]
     Indication: RHEUMATOID ARTHRITIS

REACTIONS (2)
  - Chest pain [Not Recovered/Not Resolved]
  - Drug ineffective [Unknown]
